FAERS Safety Report 9783006 (Version 2)
Quarter: 2014Q2

REPORT INFORMATION
  Report Type: Spontaneous
  Country: US (occurrence: US)
  Receive Date: 20131226
  Receipt Date: 20140417
  Transmission Date: 20141212
  Serious: Yes (Hospitalization, Other)
  Sender: FDA-Public Use
  Company Number: US-UCBSA-106444

PATIENT
  Sex: Female
  Weight: 109.7 kg

DRUGS (3)
  1. KEPPRA [Suspect]
     Dosage: FOR 3 YEARS
  2. GABAPENTIN [Concomitant]
     Dates: start: 2010
  3. GABAPENTIN [Concomitant]
     Dates: start: 201306

REACTIONS (4)
  - Convulsion [Recovered/Resolved]
  - Partial seizures [Unknown]
  - Epilepsy [Unknown]
  - Overdose [Unknown]
